FAERS Safety Report 9154554 (Version 2)
Quarter: 2013Q1

REPORT INFORMATION
  Report Type: Spontaneous
  Country: US (occurrence: None)
  Receive Date: 20130215
  Receipt Date: 20130328
  Transmission Date: 20140127
  Serious: Yes (Hospitalization)
  Sender: FDA-Public Use
  Company Number: 2013AP002334

PATIENT
  Age: 64 Year
  Sex: Female

DRUGS (5)
  1. RANITIDINE [Suspect]
  2. HYDROCHLOROTHIAZIDE [Suspect]
  3. ESTRACE [Concomitant]
  4. ENJUVIA [Concomitant]
     Route: 048
  5. ROSUVASTATIN [Concomitant]

REACTIONS (5)
  - Upper respiratory tract infection [None]
  - Urinary tract infection [None]
  - Pharyngitis [None]
  - Sinus tachycardia [None]
  - Electrocardiogram T wave inversion [None]
